FAERS Safety Report 14961497 (Version 1)
Quarter: 2018Q2

REPORT INFORMATION
  Report Type: Spontaneous
  Country: DE (occurrence: DE)
  Receive Date: 20180601
  Receipt Date: 20180601
  Transmission Date: 20180711
  Serious: Yes (Hospitalization)
  Sender: FDA-Public Use
  Company Number: PHHY2018DE008809

PATIENT
  Age: 62 Year
  Sex: Female
  Weight: 63.5 kg

DRUGS (7)
  1. BONDRONAT [Concomitant]
     Active Substance: IBANDRONIC ACID
     Indication: FRACTURE
     Dosage: UNK
     Route: 065
     Dates: start: 20110511, end: 20110831
  2. OMEP [Concomitant]
     Active Substance: OMEPRAZOLE
     Indication: DYSPEPSIA
     Dosage: UNK
     Route: 065
     Dates: start: 20171001
  3. LETROZOLE. [Suspect]
     Active Substance: LETROZOLE
     Indication: BREAST CANCER METASTATIC
     Dosage: 2.5 MG, QD
     Route: 048
     Dates: start: 20180107
  4. PALBOCICLIB [Suspect]
     Active Substance: PALBOCICLIB
     Indication: BREAST CANCER METASTATIC
     Dosage: 125 MG, QD
     Route: 048
     Dates: start: 20180107
  5. BONDRONAT [Concomitant]
     Active Substance: IBANDRONIC ACID
     Dosage: UNK
     Route: 065
     Dates: start: 201109
  6. VOLTAREN [Concomitant]
     Active Substance: DICLOFENAC SODIUM
     Indication: ARTHRALGIA
     Dosage: UNK
     Route: 065
     Dates: start: 201608
  7. CALCIVIT D [Concomitant]
     Indication: FRACTURE
     Dosage: UNK
     Route: 065
     Dates: start: 201209

REACTIONS (1)
  - Sepsis [Not Recovered/Not Resolved]

NARRATIVE: CASE EVENT DATE: 20180518
